FAERS Safety Report 5413916-4 (Version None)
Quarter: 2007Q3

REPORT INFORMATION
  Report Type: 
  Country: None (occurrence: None)
  Receive Date: 20070810
  Receipt Date: 20070727
  Transmission Date: 20080115
  Serious: No
  Sender: FDA-Public Use
  Company Number: JP-1163771

PATIENT

DRUGS (1)
  1. FLUORESCITE [Suspect]
     Indication: ANGIOGRAM RETINA
     Dosage: SOLUTION FOR INJECTION INTRAVENOUS BOLUS
     Route: 040

REACTIONS (1)
  - LOSS OF CONSCIOUSNESS [None]
